FAERS Safety Report 20219647 (Version 3)
Quarter: 2022Q1

REPORT INFORMATION
  Report Type: Spontaneous
  Country: JP (occurrence: None)
  Receive Date: 20211222
  Receipt Date: 20220303
  Transmission Date: 20220423
  Serious: Yes (Hospitalization, Other)
  Sender: FDA-Public Use
  Company Number: JP-Eisai Medical Research-EC-2021-105070

PATIENT
  Sex: Male
  Weight: 49 kg

DRUGS (4)
  1. LENVATINIB [Suspect]
     Active Substance: LENVATINIB
     Indication: Thyroid cancer metastatic
     Route: 048
     Dates: start: 20210108, end: 20210217
  2. LENVATINIB [Suspect]
     Active Substance: LENVATINIB
     Route: 048
     Dates: start: 20210218, end: 20210308
  3. LENVATINIB [Suspect]
     Active Substance: LENVATINIB
     Route: 048
     Dates: start: 20210322, end: 20210603
  4. LENVATINIB [Suspect]
     Active Substance: LENVATINIB
     Route: 048
     Dates: start: 20210812, end: 2021

REACTIONS (4)
  - COVID-19 [Recovered/Resolved]
  - Pneumonitis [Recovering/Resolving]
  - Proteinuria [Recovering/Resolving]
  - Pulmonary cavitation [Not Recovered/Not Resolved]

NARRATIVE: CASE EVENT DATE: 20210218
